FAERS Safety Report 15679817 (Version 3)
Quarter: 2018Q4

REPORT INFORMATION
  Report Type: Report from Study
  Country: DE (occurrence: DE)
  Receive Date: 20181203
  Receipt Date: 20181228
  Transmission Date: 20190205
  Serious: Yes (Death, Hospitalization, Other)
  Sender: FDA-Public Use
  Company Number: DE-TEVA-629377ACC

PATIENT
  Age: 81 Year
  Sex: Female
  Weight: 57 kg

DRUGS (9)
  1. BORTEZOMIB. [Suspect]
     Active Substance: BORTEZOMIB
     Indication: PLASMA CELL MYELOMA
     Dosage: 1.3 MG/M2, CYCLIC (ON DAYS 1, 4, 8, 11, 22, 25, 29, 32)
     Route: 058
     Dates: start: 20150911
  2. ACICLOVIR [Concomitant]
     Active Substance: ACYCLOVIR
     Indication: HERPES ZOSTER
     Route: 065
  3. BENDAMUSTINE HYDROCHLORIDE. [Suspect]
     Active Substance: BENDAMUSTINE HYDROCHLORIDE
     Indication: PLASMA CELL MYELOMA
     Dosage: 90 MG/M2, CYCLIC (FOR 30 MINUTES ON DAYS 1)
     Route: 042
     Dates: start: 20150911
  4. METOPROLOL. [Concomitant]
     Active Substance: METOPROLOL
     Indication: ATRIAL FIBRILLATION
     Route: 065
  5. DIGITOXIN [Concomitant]
     Active Substance: DIGITOXIN
     Indication: ATRIAL FIBRILLATION
     Route: 065
  6. PREDNISONE. [Suspect]
     Active Substance: PREDNISONE
     Indication: PLASMA CELL MYELOMA
     Dosage: 60 MG/M2, CYCLIC (ON DAYS 1, 2, 3, 4 ONCE ON DAY 29)
     Route: 048
     Dates: start: 20150911
  7. MEROPENEM. [Concomitant]
     Active Substance: MEROPENEM
     Indication: BRONCHITIS
     Route: 065
  8. UNACID [Concomitant]
     Indication: ESCHERICHIA INFECTION
     Route: 065
  9. CIPROFLOXACIN. [Concomitant]
     Active Substance: CIPROFLOXACIN
     Indication: URINARY TRACT INFECTION
     Route: 065

REACTIONS (2)
  - Transitional cell carcinoma [Not Recovered/Not Resolved]
  - Pneumonia escherichia [Fatal]

NARRATIVE: CASE EVENT DATE: 20160121
